FAERS Safety Report 6818484-8 (Version None)
Quarter: 2010Q3

REPORT INFORMATION
  Report Type: 
  Country: None (occurrence: None)
  Receive Date: 20100706
  Receipt Date: 20080516
  Transmission Date: 20110219
  Serious: No
  Sender: FDA-Public Use
  Company Number: US-PFIZER INC-2008032184

PATIENT
  Sex: Female

DRUGS (4)
  1. ZITHROMAX [Suspect]
     Route: 048
     Dates: start: 20080409, end: 20080414
  2. BACTRIM DS [Concomitant]
     Dates: start: 20080407
  3. RANITIDINE [Concomitant]
     Dates: start: 20080407
  4. PROMETHAZINE [Concomitant]

REACTIONS (1)
  - VOMITING [None]
